FAERS Safety Report 5170641-5 (Version None)
Quarter: 2006Q4

REPORT INFORMATION
  Report Type: 
  Country: None (occurrence: None)
  Receive Date: 20061205
  Receipt Date: 20061120
  Transmission Date: 20070319
  Serious: Yes (Other)
  Sender: FDA-Public Use
  Company Number: 2006144454

PATIENT
  Sex: Male

DRUGS (13)
  1. PREDNISOLONE [Suspect]
  2. OMEPRAZOLE [Concomitant]
  3. LOSARTAN (LORSARTAN) [Concomitant]
  4. ALENDRONIC ACID (ALENDRONIC ACID) [Concomitant]
  5. MYCOPHENOLATE SODIUM               (MYCOPHENOLIC ACID SODIUM SALT) [Suspect]
  6. NYSTAN (NYSTATIN) [Concomitant]
  7. FORCEVAL (AMINO ACIDS NOS, ELECTROLYTES NOS, FERROUS FUMARATE, NICOTIN [Concomitant]
  8. ACETYLSALIC ACID [Concomitant]
  9. METFORMIN HCL [Concomitant]
  10. GLICLAZIDE [Concomitant]
  11. ZOPICLONE [Concomitant]
  12. ROSUVASTATIN [Concomitant]
  13. INSULIN [Concomitant]

REACTIONS (1)
  - CARDIAC PACEMAKER INSERTION [None]
